FAERS Safety Report 4680339-5 (Version None)
Quarter: 2005Q2

REPORT INFORMATION
  Report Type: 
  Country: None (occurrence: None)
  Receive Date: 20050602
  Receipt Date: 20050523
  Transmission Date: 20051028
  Serious: Yes (Congenital Anomaly)
  Sender: FDA-Public Use
  Company Number: US-ABBOTT-05P-163-0301300-00

PATIENT

DRUGS (3)
  1. NORVIR [Suspect]
     Indication: DRUG EXPOSURE DURING PREGNANCY
     Route: 048
  2. EPZICOM [Suspect]
     Indication: DRUG EXPOSURE DURING PREGNANCY
  3. LEXIVA [Suspect]
     Indication: DRUG EXPOSURE DURING PREGNANCY

REACTIONS (1)
  - FOETAL MALFORMATION [None]
